FAERS Safety Report 5007757-X (Version None)
Quarter: 2006Q2

REPORT INFORMATION
  Report Type: 
  Country: None (occurrence: None)
  Receive Date: 20060403
  Receipt Date: 20050614
  Transmission Date: 20061013
  Serious: Yes (Hospitalization)
  Sender: FDA-Public Use
  Company Number: 2005EN000528

PATIENT
  Age: 7 Year
  Sex: Male
  Weight: 21.7727 kg

DRUGS (2)
  1. ONCASPAR [Suspect]
     Indication: DRUG USE FOR UNKNOWN INDICATION
     Dosage: 2250 IU;X1;IM
     Route: 030
     Dates: start: 20041019, end: 20041019
  2. ONCASPAR [Suspect]
     Indication: DRUG USE FOR UNKNOWN INDICATION
     Dosage: 2250 IU;X1;IM
     Route: 030
     Dates: start: 20041122, end: 20041122

REACTIONS (5)
  - ANAPHYLACTIC REACTION [None]
  - HYPERSENSITIVITY [None]
  - SWELLING FACE [None]
  - URTICARIA [None]
  - WHEEZING [None]
